FAERS Safety Report 8454021-2 (Version None)
Quarter: 2012Q2

REPORT INFORMATION
  Report Type: 
  Country: None (occurrence: None)
  Receive Date: 20120620
  Receipt Date: 20120531
  Transmission Date: 20120825
  Serious: No
  Sender: FDA-Public Use
  Company Number: US-ASTRAZENECA-2012SE36800

PATIENT
  Age: 31 Year
  Sex: Female
  Weight: 61.2 kg

DRUGS (2)
  1. AMBIEN [Concomitant]
  2. SEROQUEL [Suspect]
     Indication: BIPOLAR DISORDER
     Route: 048

REACTIONS (3)
  - IMPAIRED WORK ABILITY [None]
  - ADVERSE EVENT [None]
  - FATIGUE [None]
